FAERS Safety Report 25662682 (Version 2)
Quarter: 2025Q3

REPORT INFORMATION
  Report Type: Spontaneous
  Country: EU (occurrence: EU)
  Receive Date: 20250811
  Receipt Date: 20250814
  Transmission Date: 20251021
  Serious: Yes (Other)
  Sender: JOHNSON AND JOHNSON
  Company Number: EU-JNJFOC-20250810390

PATIENT
  Age: 22 Year
  Sex: Male

DRUGS (4)
  1. TOPIRAMATE [Suspect]
     Active Substance: TOPIRAMATE
     Indication: Juvenile myoclonic epilepsy
  2. LEVETIRACETAM [Suspect]
     Active Substance: LEVETIRACETAM
     Indication: Juvenile myoclonic epilepsy
  3. BRIVARACETAM [Suspect]
     Active Substance: BRIVARACETAM
     Indication: Juvenile myoclonic epilepsy
  4. LAMOTRIGINE [Suspect]
     Active Substance: LAMOTRIGINE
     Indication: Juvenile myoclonic epilepsy

REACTIONS (3)
  - Myoclonic epilepsy [Unknown]
  - Panic attack [Unknown]
  - Multiple-drug resistance [Unknown]
